FAERS Safety Report 5023794-3 (Version None)
Quarter: 2006Q2

REPORT INFORMATION
  Report Type: 
  Country: None (occurrence: None)
  Receive Date: 20060606
  Receipt Date: 20060523
  Transmission Date: 20061013
  Serious: Yes (Death, Other)
  Sender: FDA-Public Use
  Company Number: US-2005-026975

PATIENT
  Age: 76 Year
  Sex: Female

DRUGS (3)
  1. BETASERON (INTERFERON BATA - 1B)INJECTION, 250?G [Suspect]
     Indication: MULTIPLE SCLEROSIS
     Dosage: 8 MIU, EVERY 2D, SUBCUTANEOUS
     Route: 058
     Dates: start: 20000320, end: 20060410
  2. TAXOL [Concomitant]
  3. CARBAMAZEPINE [Concomitant]

REACTIONS (1)
  - NON-SMALL CELL LUNG CANCER [None]
